FAERS Safety Report 7650293-2 (Version None)
Quarter: 2011Q3

REPORT INFORMATION
  Report Type: 
  Country: None (occurrence: None)
  Receive Date: 20110719
  Receipt Date: 20101215
  Transmission Date: 20111222
  Serious: Yes (Hospitalization)
  Sender: FDA-Public Use
  Company Number: 163-21880-10112146

PATIENT
  Age: 48 Year
  Sex: Male

DRUGS (17)
  1. REVLIMID [Suspect]
     Indication: CHRONIC LYMPHOCYTIC LEUKAEMIA
     Dosage: 5 MG, DAILY FOR 21 DAYS, PO
     Route: 048
     Dates: start: 20101116
  2. VIDAZA [Suspect]
     Indication: CHRONIC LYMPHOCYTIC LEUKAEMIA
  3. PREDNISONE [Concomitant]
  4. ONDANSETRON (ONDANSETRON) (UNKNOWN) [Concomitant]
  5. KAYEXALATE [Concomitant]
  6. BENADRYL (DIPHENHYDRAMINE HYDROCHLORIDE) (UNKNOWN) [Concomitant]
  7. LACTULOSE [Concomitant]
  8. AMOXICILLIN [Concomitant]
  9. DIPHENHYDRAMINE HCL [Concomitant]
  10. LASIX [Concomitant]
  11. ALLOPURINOL [Concomitant]
  12. OXYCONTIN [Concomitant]
  13. ACETAMINOPHEN [Concomitant]
  14. NORMAL SALINE (SODIUM CHLORIDE) (UNKNOWN) [Concomitant]
  15. AUGMENTIN (CLAVULIN) (UNKNOWN) [Concomitant]
  16. OXYCODONE (OXYCODONE) (UNKNOWN) [Concomitant]
  17. TYLENOL (PARACETAMOL) (UNKNOWN) [Concomitant]

REACTIONS (1)
  - PELVIC PAIN [None]
